FAERS Safety Report 4364885-X (Version None)
Quarter: 2004Q2

REPORT INFORMATION
  Report Type: 
  Country: None (occurrence: None)
  Receive Date: 20040525
  Receipt Date: 20040525
  Transmission Date: 20050107
  Serious: No
  Sender: FDA-Public Use
  Company Number: None

PATIENT
  Age: 42 Year
  Sex: Female
  Weight: 57.6068 kg

DRUGS (1)
  1. DEPO-PROVERA [Suspect]
     Indication: ENDOMETRIOSIS
     Dosage: 1 SHOT 01/05/2005

REACTIONS (5)
  - AMENORRHOEA [None]
  - CARDIAC MURMUR [None]
  - HOT FLUSH [None]
  - MENOPAUSE [None]
  - OVARIAN CYST [None]
